FAERS Safety Report 8873307 (Version 2)
Quarter: 2012Q4

REPORT INFORMATION
  Report Type: Report from Study
  Country: FR (occurrence: FR)
  Receive Date: 20121029
  Receipt Date: 20121101
  Transmission Date: 20130627
  Serious: Yes (Hospitalization)
  Sender: FDA-Public Use
  Company Number: FR-UCBSA-069633

PATIENT
  Age: 65 Year
  Sex: Female
  Weight: 68 kg

DRUGS (11)
  1. CIMZIA [Suspect]
     Indication: RHEUMATOID ARTHRITIS
     Route: 058
     Dates: start: 20120305, end: 20120611
  2. PROFENID [Concomitant]
     Indication: RHEUMATOID ARTHRITIS
     Dosage: DAILY DOSE: 200 MG
     Route: 048
     Dates: start: 20080802
  3. CORTANCYL [Concomitant]
     Indication: RHEUMATOID ARTHRITIS
     Dosage: DAILY DOSE: 20 MG
     Route: 048
     Dates: start: 20021114
  4. SOLUMEDROL [Concomitant]
     Indication: RHEUMATOID ARTHRITIS
     Dosage: DAILY DOSE:120 MG
     Dates: start: 20120414, end: 201205
  5. ACTONEL [Concomitant]
     Indication: RHEUMATOID ARTHRITIS
     Dosage: DAILY DOSE:75 MG
     Route: 048
  6. FIXICAL [Concomitant]
     Indication: RHEUMATOID ARTHRITIS
     Dosage: DAILY DOSE:1 TABLET
     Route: 048
  7. ACUPAN [Concomitant]
     Indication: RHEUMATOID ARTHRITIS
     Dosage: UNKNOWN DOSE
     Dates: start: 20120411
  8. INEXIUM [Concomitant]
     Dosage: DAILY DOSE: 40 MG
  9. DAFALGAN [Concomitant]
     Dosage: 1 G ON REQUEST
  10. MYOLASTAN [Concomitant]
     Indication: RHEUMATOID ARTHRITIS
     Dosage: DAILY DOSE:100 MG
     Dates: start: 20120413
  11. STILNOX [Concomitant]
     Indication: INSOMNIA
     Dosage: DAILY DOSE:10 MG
     Dates: start: 20120411

REACTIONS (2)
  - Deep vein thrombosis [Recovered/Resolved]
  - Drug ineffective [Recovered/Resolved]
